FAERS Safety Report 20193356 (Version 1)
Quarter: 2021Q4

REPORT INFORMATION
  Report Type: Spontaneous
  Country: MY (occurrence: MY)
  Receive Date: 20211216
  Receipt Date: 20211216
  Transmission Date: 20220303
  Serious: Yes (Other)
  Sender: FDA-Public Use
  Company Number: MY-NOVARTISPH-NVSC2021MY285623

PATIENT
  Age: 10 Month
  Sex: Male

DRUGS (1)
  1. CEFAZOLIN SODIUM [Suspect]
     Active Substance: CEFAZOLIN SODIUM
     Indication: Eczema infected
     Dosage: 200 MG, Q6H
     Route: 042

REACTIONS (2)
  - Respiratory depression [Recovered/Resolved]
  - Seizure [Recovered/Resolved]
